FAERS Safety Report 8232600-5 (Version None)
Quarter: 2012Q1

REPORT INFORMATION
  Report Type: 
  Country: None (occurrence: None)
  Receive Date: 20120323
  Receipt Date: 20120321
  Transmission Date: 20120608
  Serious: Yes (Death, Other)
  Sender: FDA-Public Use
  Company Number: DE-B.I. PHARMACEUTICALS,INC./RIDGEFIELD-2012-DE-00703DE

PATIENT
  Sex: Male
  Weight: 91 kg

DRUGS (9)
  1. PRADAXA [Suspect]
     Indication: INTRACARDIAC THROMBUS
     Dosage: 220 MG
     Route: 048
     Dates: start: 20120306, end: 20120306
  2. PRADAXA [Suspect]
     Dosage: 110 MG }
     Route: 048
     Dates: start: 20120307, end: 20120307
  3. BISOPROLOL FUMARATE [Concomitant]
     Dosage: 2.5 MG
     Route: 048
     Dates: end: 20120310
  4. HEPARIN [Suspect]
     Indication: ACUTE MYOCARDIAL INFARCTION
     Dosage: 5000 ANZ
     Route: 042
  5. PRADAXA [Suspect]
     Indication: ATRIAL FIBRILLATION
     Dosage: 110 MG
     Route: 048
     Dates: start: 20120305, end: 20120305
  6. TORSEMIDE [Concomitant]
     Dosage: 10 MG
     Route: 048
     Dates: end: 20120310
  7. ASPIRIN [Suspect]
     Indication: ACUTE MYOCARDIAL INFARCTION
  8. BRILIQUE [Suspect]
     Indication: ACUTE MYOCARDIAL INFARCTION
     Dosage: 180 MG
     Route: 048
  9. ENOXAPARIN SODIUM [Concomitant]
     Dosage: 1.8 ML
     Route: 058
     Dates: start: 20120302, end: 20120305

REACTIONS (8)
  - PULMONARY HAEMORRHAGE [None]
  - HAEMOPTYSIS [None]
  - HAEMATURIA [None]
  - RESPIRATORY DISTRESS [None]
  - MULTI-ORGAN FAILURE [None]
  - ACUTE MYOCARDIAL INFARCTION [None]
  - HAEMOGLOBIN DECREASED [None]
  - BLOOD URINE PRESENT [None]
